FAERS Safety Report 8620854-2 (Version None)
Quarter: 2012Q3

REPORT INFORMATION
  Report Type: 
  Country: None (occurrence: None)
  Receive Date: 20120824
  Receipt Date: 20120820
  Transmission Date: 20120928
  Serious: Yes (Hospitalization)
  Sender: FDA-Public Use
  Company Number: FR-ROCHE-1104694

PATIENT
  Age: 41 Year
  Sex: Male

DRUGS (7)
  1. RISPERDAL CONSTA [Suspect]
     Route: 030
     Dates: start: 20120425
  2. RISPERDAL CONSTA [Suspect]
     Indication: SCHIZOPHRENIA, PARANOID TYPE
     Route: 030
     Dates: start: 20111111, end: 20120421
  3. HAVLANE [Suspect]
     Route: 048
     Dates: start: 20120425
  4. CLONAZEPAM [Suspect]
     Indication: SCHIZOPHRENIA, PARANOID TYPE
     Route: 048
     Dates: start: 20111111, end: 20120421
  5. CLONAZEPAM [Suspect]
     Route: 048
     Dates: start: 20120425
  6. CLOZAPINE [Suspect]
     Indication: SCHIZOPHRENIA, PARANOID TYPE
     Route: 048
     Dates: start: 20111111, end: 20120421
  7. HAVLANE [Suspect]
     Indication: SCHIZOPHRENIA, PARANOID TYPE
     Route: 048
     Dates: start: 20111111, end: 20120421

REACTIONS (1)
  - AGRANULOCYTOSIS [None]
